FAERS Safety Report 6845826-X (Version None)
Quarter: 2010Q3

REPORT INFORMATION
  Report Type: 
  Country: None (occurrence: None)
  Receive Date: 20100715
  Receipt Date: 20071015
  Transmission Date: 20110219
  Serious: Yes (Other)
  Sender: FDA-Public Use
  Company Number: US-PFIZER INC-2007072028

PATIENT
  Sex: Female
  Weight: 52.2 kg

DRUGS (4)
  1. CHANTIX [Suspect]
     Indication: SMOKING CESSATION THERAPY
     Route: 048
     Dates: start: 20070801
  2. ALL OTHER THERAPEUTIC PRODUCTS [Concomitant]
  3. COMBIVENT [Concomitant]
  4. FLOVENT [Concomitant]

REACTIONS (2)
  - DYSPNOEA [None]
  - FATIGUE [None]
